FAERS Safety Report 24141559 (Version 1)
Quarter: 2024Q3

REPORT INFORMATION
  Report Type: Spontaneous
  Country: US (occurrence: None)
  Receive Date: 20240725
  Receipt Date: 20240725
  Transmission Date: 20241017
  Serious: Yes (Other)
  Sender: Public
  Company Number: None

PATIENT
  Age: 19 Year
  Sex: Male
  Weight: 118.35 kg

DRUGS (1)
  1. INVEGA SUSTENNA [Suspect]
     Active Substance: PALIPERIDONE PALMITATE
     Indication: Psychotic disorder
     Dosage: FREQUENCY : MONTHLY;?
     Route: 030
     Dates: start: 20240314, end: 20240508

REACTIONS (4)
  - Fatigue [None]
  - Arthralgia [None]
  - Somnolence [None]
  - Injection site abscess [None]

NARRATIVE: CASE EVENT DATE: 20240521
